FAERS Safety Report 4310390-6 (Version None)
Quarter: 2004Q1

REPORT INFORMATION
  Report Type: 
  Country: None (occurrence: None)
  Receive Date: 20040302
  Receipt Date: 20040212
  Transmission Date: 20041129
  Serious: Yes (Hospitalization)
  Sender: FDA-Public Use
  Company Number: F01200400262

PATIENT
  Age: 69 Year
  Sex: Female

DRUGS (2)
  1. OXALIPLATIN [Suspect]
     Indication: GALLBLADDER CANCER
     Dosage: 130 MG/M2 Q3W
     Route: 042
     Dates: start: 20031002
  2. (CAPECITABINE)  - TABLET - 1000 MG/M2 [Suspect]
     Dosage: 1000 MG/M2 TWICE A DAY FROM D1 TO D14, Q3W
     Route: 048
     Dates: start: 20031002

REACTIONS (1)
  - LARYNGOSPASM [None]
